FAERS Safety Report 12798351 (Version 1)
Quarter: 2016Q3

REPORT INFORMATION
  Report Type: Spontaneous
  Country: US (occurrence: US)
  Receive Date: 20160930
  Receipt Date: 20160930
  Transmission Date: 20161109
  Serious: No
  Sender: FDA-Public Use
  Company Number: US-KOWA-15US001087

PATIENT
  Age: 60 Year
  Sex: Male

DRUGS (3)
  1. ADVIL (MEFENAMIC ACID) [Concomitant]
     Active Substance: MEFENAMIC ACID
     Dosage: UNK, PRN
  2. LIVALO [Suspect]
     Active Substance: PITAVASTATIN CALCIUM
     Indication: BLOOD CHOLESTEROL
     Dosage: 2 MG, QD
     Dates: start: 20150803, end: 20150804
  3. LISINOPRIL. [Concomitant]
     Active Substance: LISINOPRIL
     Dosage: 10 MG, UNK
     Dates: start: 2009

REACTIONS (8)
  - Pyrexia [Recovered/Resolved]
  - Nephrolithiasis [Unknown]
  - Chills [Recovered/Resolved]
  - Prostatitis [Unknown]
  - Blood bilirubin increased [Unknown]
  - Feeling cold [Recovered/Resolved]
  - Myalgia [Recovered/Resolved]
  - Pollakiuria [Recovered/Resolved]

NARRATIVE: CASE EVENT DATE: 20150804
